FAERS Safety Report 7350548-5 (Version None)
Quarter: 2011Q1

REPORT INFORMATION
  Report Type: 
  Country: None (occurrence: None)
  Receive Date: 20110314
  Receipt Date: 20110309
  Transmission Date: 20110831
  Serious: Yes (Other)
  Sender: FDA-Public Use
  Company Number: IT-PFIZER INC-2011051613

PATIENT
  Age: 70 Year
  Sex: Female

DRUGS (3)
  1. AROMASIN [Suspect]
     Indication: BREAST CANCER
     Dosage: UNK
     Dates: start: 20101101, end: 20110202
  2. VITAMIN B [Concomitant]
     Indication: OSTEOPOROSIS
  3. CALCIUM [Concomitant]
     Indication: OSTEOPOROSIS

REACTIONS (1)
  - TRANSAMINASES INCREASED [None]
